FAERS Safety Report 20484375 (Version 1)
Quarter: 2022Q1

REPORT INFORMATION
  Report Type: Spontaneous
  Country: CO (occurrence: CO)
  Receive Date: 20220217
  Receipt Date: 20220217
  Transmission Date: 20220423
  Serious: Yes (Other)
  Sender: FDA-Public Use
  Company Number: CO-PFIZER INC-202200229203

PATIENT
  Age: 5 Year
  Sex: Male

DRUGS (1)
  1. RAPAMUNE [Suspect]
     Active Substance: SIROLIMUS
     Indication: Gorham^s disease
     Dosage: UNK
     Dates: start: 202108

REACTIONS (8)
  - Pyrexia [Unknown]
  - Appendicitis [Unknown]
  - Dysphonia [Unknown]
  - Abdominal pain upper [Unknown]
  - Bronchitis [Unknown]
  - Blood disorder [Unknown]
  - Off label use [Unknown]
  - Off label use [Unknown]

NARRATIVE: CASE EVENT DATE: 20220101
